FAERS Safety Report 8255760-9 (Version None)
Quarter: 2012Q2

REPORT INFORMATION
  Report Type: 
  Country: None (occurrence: None)
  Receive Date: 20120403
  Receipt Date: 20120320
  Transmission Date: 20120825
  Serious: Yes (Hospitalization)
  Sender: FDA-Public Use
  Company Number: US-ROCHE-1002587

PATIENT
  Age: 63 Year
  Sex: Female
  Weight: 122.73 kg

DRUGS (9)
  1. AVASTIN [Suspect]
     Indication: ENDOMETRIAL CANCER
     Dosage: OVER 30-90 MINUTES ON DAY 1,STARTING WITH CYCLE 2 X6 CYCLES, NO PRIOR RADIOTHERAPY
     Route: 042
     Dates: start: 20110502
  2. PERCOCET [Concomitant]
  3. AVASTIN [Suspect]
     Dosage: PRIOR RADIOTHERAPY, IV OVER 30-90 MINUTES ON DAY 1 (
     Route: 042
  4. CARBOPLATIN [Suspect]
     Indication: ENDOMETRIAL CANCER
     Dosage: NO PRIOR RADIOTHERAPY, AUC = 6 IV OVER 30 MINUTES ON DAY 1 X 6 CYCLES
     Route: 042
     Dates: start: 20110502
  5. PACLITAXEL [Suspect]
     Dosage: PRIOR RADIOTHERAPY,OVER 3 HRS ON DAY 1 X 6 CYCLES
     Route: 042
  6. ARIXTRA [Concomitant]
  7. CARBOPLATIN [Suspect]
     Dosage: AUC = 5 IV OVER 30 MINUTES ON DAY 1 X 6 CYCLES
     Route: 042
  8. PACLITAXEL [Suspect]
     Indication: ENDOMETRIAL CANCER
     Dosage: NO PRIOR RADIOTHERAPY, IV OVER 3 HRS ON DAY 1 X 6 CYCLES
     Route: 042
     Dates: start: 20110502
  9. LYRICA [Concomitant]

REACTIONS (14)
  - HYPOKALAEMIA [None]
  - PAIN [None]
  - DEHYDRATION [None]
  - HYPOCALCAEMIA [None]
  - SKIN ULCER [None]
  - VOMITING [None]
  - HYPOMAGNESAEMIA [None]
  - BLOOD CREATININE INCREASED [None]
  - HYPOALBUMINAEMIA [None]
  - RENAL FAILURE ACUTE [None]
  - NAUSEA [None]
  - DIARRHOEA [None]
  - HAEMOGLOBIN DECREASED [None]
  - ANAEMIA [None]
